FAERS Safety Report 23785463 (Version 2)
Quarter: 2024Q3

REPORT INFORMATION
  Report Type: Spontaneous
  Country: US (occurrence: US)
  Receive Date: 20240425
  Receipt Date: 20240823
  Transmission Date: 20241017
  Serious: No
  Sender: BRISTOL MYERS SQUIBB
  Company Number: US-BRISTOL-MYERS SQUIBB COMPANY-2024-065311

PATIENT
  Age: 82 Year
  Sex: Female

DRUGS (1)
  1. LENALIDOMIDE [Suspect]
     Active Substance: LENALIDOMIDE
     Indication: Breast cancer female
     Route: 048

REACTIONS (6)
  - Anaemia [Unknown]
  - Off label use [Unknown]
  - Pain [Recovered/Resolved]
  - Headache [Unknown]
  - White blood cell count decreased [Recovered/Resolved]
  - Laboratory test abnormal [Recovered/Resolved]
